FAERS Safety Report 16886209 (Version 1)
Quarter: 2019Q4

REPORT INFORMATION
  Report Type: Spontaneous
  Country: US (occurrence: US)
  Receive Date: 20191004
  Receipt Date: 20191004
  Transmission Date: 20200122
  Serious: Yes (Hospitalization)
  Sender: FDA-Public Use
  Company Number: None

PATIENT
  Age: 78 Year
  Sex: Male

DRUGS (10)
  1. LOSARTAN POT TAB 50 MG [Concomitant]
  2. TERAZOSIN CAP 5 MG [Concomitant]
  3. CLONIDINE 0.1 MG [Concomitant]
     Active Substance: CLONIDINE
  4. AMPHETAMINE 60 MG [Concomitant]
  5. ZETIA TAB 10 MG [Concomitant]
  6. LEVOTHYROXINE TAB 100 MCG [Concomitant]
  7. BUMETANIDE 1 MG [Concomitant]
     Active Substance: BUMETANIDE
  8. REPATHA [Suspect]
     Active Substance: EVOLOCUMAB
     Indication: HYPERLIPIDAEMIA
     Dosage: ?          OTHER FREQUENCY:EVERY 2 WEEKS;?
     Route: 058
     Dates: start: 20190813
  9. SPIRONOLACTONE 25 MG [Concomitant]
     Active Substance: SPIRONOLACTONE
  10. AMLODIPINE TAB 5 MG [Concomitant]

REACTIONS (1)
  - Heart rate decreased [None]
